FAERS Safety Report 7037831-8 (Version None)
Quarter: 2010Q4

REPORT INFORMATION
  Report Type: 
  Country: None (occurrence: None)
  Receive Date: 20101011
  Receipt Date: 20100927
  Transmission Date: 20110411
  Serious: Yes (Other)
  Sender: FDA-Public Use
  Company Number: US-JNJCH-2010022322

PATIENT
  Age: 24 Year
  Sex: Female

DRUGS (1)
  1. ROGAINE [Suspect]
     Indication: ALOPECIA
     Dosage: TEXT:UNKNOWN
     Route: 061

REACTIONS (4)
  - DIARRHOEA [None]
  - FEELING OF BODY TEMPERATURE CHANGE [None]
  - MALAISE [None]
  - SYNCOPE [None]
